FAERS Safety Report 4583812-3 (Version None)
Quarter: 2005Q1

REPORT INFORMATION
  Report Type: 
  Country: None (occurrence: None)
  Receive Date: 20050211
  Receipt Date: 20050203
  Transmission Date: 20050727
  Serious: Yes (Hospitalization)
  Sender: FDA-Public Use
  Company Number: TPA2005A00136

PATIENT
  Age: 55 Year
  Sex: Female
  Weight: 60.782 kg

DRUGS (19)
  1. ACTOS [Suspect]
     Indication: DIABETES MELLITUS NON-INSULIN-DEPENDENT
     Dosage: 45 MG, 1 IN 1 D, PER ORAL
     Route: 048
     Dates: start: 20000203
  2. KLONOPIN [Concomitant]
  3. ENDOCET (OXYCOCET) [Concomitant]
  4. OXYCODONE (ACETAMINOPHEN (OXYCODONE/APAP) [Concomitant]
  5. CAPTOPRIL [Concomitant]
  6. MACROBID [Concomitant]
  7. LEVOXYL [Concomitant]
  8. STARLIX [Concomitant]
  9. FIBERCON (POLYCARBOPHIL CALCIUM) [Concomitant]
  10. NARDIL [Concomitant]
  11. PREVACID [Concomitant]
  12. FLOVENT [Concomitant]
  13. SEREVENT [Concomitant]
  14. ALBUTEROL [Concomitant]
  15. SINGULAIR (MONTELUKAST) [Concomitant]
  16. VERAPAMIL [Concomitant]
  17. BECONASE AQ (BECLOMETASONE DIPROPIONATE) [Concomitant]
  18. MULTIVITAMIN [Concomitant]
  19. CORICIDIN HBP (CORICIDIN) [Concomitant]

REACTIONS (4)
  - ARTHRITIS INFECTIVE [None]
  - OSTEOPOROSIS [None]
  - PYREXIA [None]
  - SKIN GRAFT [None]
